FAERS Safety Report 7299895-6 (Version None)
Quarter: 2011Q1

REPORT INFORMATION
  Report Type: 
  Country: None (occurrence: None)
  Receive Date: 20110217
  Receipt Date: 20110209
  Transmission Date: 20110831
  Serious: Yes (Other)
  Sender: FDA-Public Use
  Company Number: GB-ASTRAZENECA-2011SE07737

PATIENT
  Age: 42 Year
  Sex: Male
  Weight: 80 kg

DRUGS (2)
  1. SEROQUEL [Suspect]
     Indication: AFFECT LABILITY
     Route: 048
     Dates: start: 20100804, end: 20110126
  2. DIAZEPAM [Concomitant]
     Indication: AGITATION
     Route: 048
     Dates: start: 20100526

REACTIONS (2)
  - VISUAL IMPAIRMENT [None]
  - CATARACT [None]
